FAERS Safety Report 5733307-6 (Version None)
Quarter: 2008Q2

REPORT INFORMATION
  Report Type: 
  Country: None (occurrence: None)
  Receive Date: 20080509
  Receipt Date: 20080429
  Transmission Date: 20081010
  Serious: Yes (Hospitalization, Other)
  Sender: FDA-Public Use
  Company Number: US-ABBOTT-08P-163-0449450-00

PATIENT
  Sex: Female
  Weight: 61.744 kg

DRUGS (9)
  1. HUMIRA [Suspect]
     Indication: RHEUMATOID ARTHRITIS
     Route: 058
     Dates: start: 20040401
  2. DILTIAZEM [Concomitant]
     Indication: DRUG USE FOR UNKNOWN INDICATION
  3. BENACAR [Concomitant]
     Indication: DRUG USE FOR UNKNOWN INDICATION
  4. SINGULAIR [Concomitant]
     Indication: DRUG USE FOR UNKNOWN INDICATION
  5. LOVASTATIN [Concomitant]
     Indication: DRUG USE FOR UNKNOWN INDICATION
  6. TAMECOR [Concomitant]
     Indication: ATRIAL FIBRILLATION
  7. SPIRIVA [Concomitant]
     Indication: ASTHMA
     Route: 055
  8. WARFARIN SODIUM [Concomitant]
     Indication: ATRIAL FIBRILLATION
     Route: 048
  9. PREDNISONE TAB [Concomitant]
     Indication: DRUG USE FOR UNKNOWN INDICATION
     Dosage: 40 MG DAILY
     Route: 048

REACTIONS (10)
  - ASTHMA [None]
  - ATRIAL FIBRILLATION [None]
  - BRONCHITIS CHRONIC [None]
  - CANDIDIASIS [None]
  - CARDIAC FAILURE [None]
  - LUNG INFECTION [None]
  - NODULE [None]
  - SINUSITIS [None]
  - URINARY TRACT INFECTION [None]
  - WEIGHT DECREASED [None]
